FAERS Safety Report 15702499 (Version 1)
Quarter: 2018Q4

REPORT INFORMATION
  Report Type: Spontaneous
  Country: IT (occurrence: IT)
  Receive Date: 20181210
  Receipt Date: 20181210
  Transmission Date: 20190205
  Serious: Yes (Other)
  Sender: FDA-Public Use
  Company Number: IT-ACCORD-063749

PATIENT
  Age: 62 Year
  Sex: Female
  Weight: 65 kg

DRUGS (3)
  1. PACLITAXEL/PACLITAXEL LIPOSOME [Suspect]
     Active Substance: PACLITAXEL
     Indication: NEOPLASM PROGRESSION
     Dosage: LAST DOSE RECEIVED ON 16-JAN-2018
     Route: 042
     Dates: start: 20171121
  2. CARBOPLATIN. [Suspect]
     Active Substance: CARBOPLATIN
     Indication: NEOPLASM PROGRESSION
     Dosage: LAST DOSE RECEIVED ON 16-JAN-2018
     Route: 042
     Dates: start: 20171121
  3. AVASTIN [Suspect]
     Active Substance: BEVACIZUMAB
     Indication: NEOPLASM PROGRESSION
     Dosage: LAST DOSE ON 16-JAN-2018?STRENGTH: 25 MG/ML
     Route: 042
     Dates: start: 20171121

REACTIONS (4)
  - Arthralgia [Unknown]
  - Paraesthesia [Unknown]
  - Asthenia [Recovering/Resolving]
  - Mucosal inflammation [Recovering/Resolving]

NARRATIVE: CASE EVENT DATE: 20171130
